FAERS Safety Report 24153403 (Version 1)
Quarter: 2024Q3

REPORT INFORMATION
  Report Type: Spontaneous
  Country: US (occurrence: None)
  Receive Date: 20240730
  Receipt Date: 20240730
  Transmission Date: 20241016
  Serious: Yes (Life-Threatening, Hospitalization, Disabling, Other)
  Sender: Public
  Company Number: None

PATIENT
  Age: 54 Year
  Sex: Female
  Weight: 52.16 kg

DRUGS (16)
  1. CELESTONE [Suspect]
     Active Substance: BETAMETHASONE
     Indication: Back pain
  2. MARCAINE [Suspect]
     Active Substance: BUPIVACAINE HYDROCHLORIDE
  3. HYDROMORPHONE [Concomitant]
     Active Substance: HYDROMORPHONE
  4. METHADONE [Concomitant]
     Active Substance: METHADONE HYDROCHLORIDE
  5. MORPHONE [Concomitant]
  6. ALPRAZOLAM [Concomitant]
     Active Substance: ALPRAZOLAM
  7. LINZESS [Concomitant]
     Active Substance: LINACLOTIDE
  8. AMITIZA [Concomitant]
     Active Substance: LUBIPROSTONE
  9. PANTOPRAZOLE SODIUM [Concomitant]
     Active Substance: PANTOPRAZOLE SODIUM
  10. REGLAN [Concomitant]
     Active Substance: METOCLOPRAMIDE HYDROCHLORIDE
  11. FAMOTIDINE [Concomitant]
     Active Substance: FAMOTIDINE
  12. ESTRADIOL [Concomitant]
     Active Substance: ESTRADIOL
  13. SYNTHROID [Concomitant]
     Active Substance: LEVOTHYROXINE SODIUM
  14. ACETAZOLAMIDE [Concomitant]
     Active Substance: ACETAZOLAMIDE
  15. PROMETHAZINE [Concomitant]
     Active Substance: PROMETHAZINE HYDROCHLORIDE
  16. CENTRUM SILVER WOMEN 50+ MULTIVITAMIN/MULTIMINERAL SUPPLEMENT [Concomitant]

REACTIONS (14)
  - Tremor [None]
  - Arachnoiditis [None]
  - Product communication issue [None]
  - Post procedural complication [None]
  - Iatrogenic injury [None]
  - Quality of life decreased [None]
  - Gait inability [None]
  - Loss of personal independence in daily activities [None]
  - Pain [None]
  - Near death experience [None]
  - Weight decreased [None]
  - Hypophagia [None]
  - Insomnia [None]
  - Suicide attempt [None]

NARRATIVE: CASE EVENT DATE: 20130214
